FAERS Safety Report 4999119-6 (Version None)
Quarter: 2006Q2

REPORT INFORMATION
  Report Type: 
  Country: None (occurrence: None)
  Receive Date: 20060509
  Receipt Date: 20060419
  Transmission Date: 20061013
  Serious: Yes (Hospitalization)
  Sender: FDA-Public Use
  Company Number: US200604003033

PATIENT
  Sex: Female

DRUGS (1)
  1. HUMULIN L [Suspect]
     Indication: DIABETES MELLITUS
     Dosage: SEE IMAGE

REACTIONS (4)
  - BLISTER [None]
  - BLOOD GLUCOSE DECREASED [None]
  - FOOT AMPUTATION [None]
  - LOCALISED INFECTION [None]
